FAERS Safety Report 5128233-X (Version None)
Quarter: 2006Q4

REPORT INFORMATION
  Report Type: 
  Country: None (occurrence: None)
  Receive Date: 20061011
  Receipt Date: 20061002
  Transmission Date: 20070319
  Serious: Yes (Other)
  Sender: FDA-Public Use
  Company Number: CHNY2006JP02539

PATIENT
  Age: 48 Year
  Sex: Female

DRUGS (1)
  1. NICOTELL TTS (NCH) (NICOTINE) TRANS-THERAPEUTIC-SYSTEM [Suspect]
     Dosage: 21 MG, QD, TRANSDERMAL
     Route: 062
     Dates: start: 20060729, end: 20060820

REACTIONS (3)
  - APPLICATION SITE DERMATITIS [None]
  - DERMATITIS CONTACT [None]
  - URTICARIA GENERALISED [None]
